FAERS Safety Report 20109220 (Version 1)
Quarter: 2021Q4

REPORT INFORMATION
  Report Type: Other
  Country: DE (occurrence: None)
  Receive Date: 20211124
  Receipt Date: 20211124
  Transmission Date: 20220304
  Serious: Yes (Hospitalization)
  Sender: FDA-Public Use
  Company Number: DE-ROCHE-1160659

PATIENT
  Age: 56 Year
  Sex: Male
  Weight: 84 kg

DRUGS (6)
  1. PEGINTERFERON ALFA-2A [Suspect]
     Active Substance: PEGINTERFERON ALFA-2A
     Indication: Chronic hepatitis C
     Dosage: LAST DOSE PRIOR TO SAE ON 22/OCT/2012
     Route: 058
     Dates: start: 20121016
  2. RIBAVIRIN [Suspect]
     Active Substance: RIBAVIRIN
     Indication: Chronic hepatitis C
     Dosage: LAST DOSE PRIOR TO SAE ON 22/NOV/2012
     Route: 048
     Dates: start: 20121016
  3. TELAPREVIR [Suspect]
     Active Substance: TELAPREVIR
     Indication: Chronic hepatitis C
     Dosage: LAST DOSE PRIOR TO SAE ON 22/NOV/2012
     Route: 048
     Dates: start: 20121016
  4. RAMIPRIL [Concomitant]
     Active Substance: RAMIPRIL
     Indication: Hypertension
     Dosage: LAST DOSE PRIOR TO SAE ON 22/NOV/2012
     Route: 048
     Dates: start: 20121102
  5. RAMIPRIL [Concomitant]
     Active Substance: RAMIPRIL
     Route: 048
  6. OMEPRAZOLE [Concomitant]
     Active Substance: OMEPRAZOLE
     Dosage: LAST DOSE PRIOR TO SAE ON 22/NOV/2012
     Route: 048
     Dates: start: 20121120

REACTIONS (6)
  - Depression [Not Recovered/Not Resolved]
  - Nausea [Unknown]
  - Depressed mood [Not Recovered/Not Resolved]
  - Gastrooesophageal reflux disease [Not Recovered/Not Resolved]
  - Insomnia [Not Recovered/Not Resolved]
  - Fatigue [Not Recovered/Not Resolved]

NARRATIVE: CASE EVENT DATE: 20121022
